FAERS Safety Report 18826014 (Version 1)
Quarter: 2021Q1

REPORT INFORMATION
  Report Type: Other
  Country: US (occurrence: US)
  Receive Date: 20210202
  Receipt Date: 20210202
  Transmission Date: 20210419
  Serious: Yes (Hospitalization)
  Sender: FDA-Public Use
  Company Number: US-ROCHE-2754918

PATIENT
  Sex: Male
  Weight: 111.23 kg

DRUGS (1)
  1. OCREVUS [Suspect]
     Active Substance: OCRELIZUMAB
     Indication: MULTIPLE SCLEROSIS
     Dosage: DATES OF TREATMENT: 17/AUG/2017, 28/AUG/2017, 14/AUG/2018, 15/FEB/2019, 15/AUG/2019, 17/FEB/2020, 19
     Route: 042
     Dates: start: 20150815

REACTIONS (2)
  - COVID-19 [Recovered/Resolved]
  - Gallbladder rupture [Recovered/Resolved]

NARRATIVE: CASE EVENT DATE: 2020
